FAERS Safety Report 6472366-2 (Version None)
Quarter: 2009Q4

REPORT INFORMATION
  Report Type: 
  Country: None (occurrence: None)
  Receive Date: 20091130
  Receipt Date: 20091119
  Transmission Date: 20100525
  Serious: Yes (Other)
  Sender: FDA-Public Use
  Company Number: 2009SP029250

PATIENT
  Age: 39 Year
  Sex: Female
  Weight: 58 kg

DRUGS (2)
  1. GRACIAL (DESOGESTREL/ETHINYLESTRADIOL) (DESOGESTREL/ETHINYLESTRADIOL) [Suspect]
     Indication: CONTRACEPTION
     Dosage: ; PO
     Route: 048
     Dates: start: 20090507, end: 20090512
  2. GRACIAL (DESOGESTREL/ETHINYLESTRADIOL) (DESOGESTREL/ETHINYLESTRADIOL) [Suspect]
     Indication: CONTRACEPTION
     Dosage: ; PO
     Route: 048
     Dates: start: 20050101

REACTIONS (3)
  - HEPATITIS [None]
  - INFECTION [None]
  - VOMITING [None]
